FAERS Safety Report 11745240 (Version 2)
Quarter: 2017Q3

REPORT INFORMATION
  Report Type: Report from Study
  Country: CA (occurrence: CA)
  Receive Date: 20151117
  Receipt Date: 20170808
  Transmission Date: 20171127
  Serious: Yes (Other)
  Sender: FDA-Public Use
  Company Number: CA-009507513-1511CAN003484

PATIENT
  Age: 79 Year
  Sex: Female
  Weight: 74 kg

DRUGS (2)
  1. IVERMECTIN. [Suspect]
     Active Substance: IVERMECTIN
     Dosage: 15 MG, QD
     Route: 048
     Dates: start: 2015
  2. IVERMECTIN. [Suspect]
     Active Substance: IVERMECTIN
     Indication: STRONGYLOIDIASIS
     Dosage: 15 MG, QD
     Route: 048
     Dates: start: 2015, end: 2015

REACTIONS (4)
  - Deep vein thrombosis [Unknown]
  - Fungaemia [Recovered/Resolved]
  - Pneumonia [Recovered/Resolved]
  - Strongyloidiasis [Unknown]

NARRATIVE: CASE EVENT DATE: 2015
